FAERS Safety Report 8153847-2 (Version None)
Quarter: 2012Q1

REPORT INFORMATION
  Report Type: 
  Country: None (occurrence: None)
  Receive Date: 20120221
  Receipt Date: 20120208
  Transmission Date: 20120608
  Serious: Yes (Hospitalization)
  Sender: FDA-Public Use
  Company Number: DE-ELI_LILLY_AND_COMPANY-DE201201005502

PATIENT
  Sex: Female

DRUGS (4)
  1. FORTEO [Suspect]
     Indication: OSTEOPOROSIS
     Dosage: UNK, QD
     Route: 058
     Dates: start: 20120103, end: 20120106
  2. FORTEO [Suspect]
     Dosage: UNK, QD
     Route: 058
  3. BISOPROLOL FUMARATE [Concomitant]
  4. DIPYRONE TAB [Concomitant]

REACTIONS (5)
  - APATHY [None]
  - DEHYDRATION [None]
  - DIZZINESS [None]
  - THIRST DECREASED [None]
  - DECREASED APPETITE [None]
